FAERS Safety Report 5276200-8 (Version None)
Quarter: 2007Q1

REPORT INFORMATION
  Report Type: 
  Country: None (occurrence: None)
  Receive Date: 20070322
  Receipt Date: 20070322
  Transmission Date: 20070707
  Serious: Yes (Other)
  Sender: FDA-Public Use
  Company Number: None

PATIENT
  Age: 46 Year
  Sex: Female
  Weight: 50.8029 kg

DRUGS (2)
  1. LUNESTA [Suspect]
     Indication: CIRCADIAN RHYTHM SLEEP DISORDER
     Dosage: 3MG NIGHTLY BUCCAL
     Route: 002
     Dates: start: 20070217, end: 20070314
  2. LUNESTA [Suspect]
     Indication: INSOMNIA
     Dosage: 3MG NIGHTLY BUCCAL
     Route: 002
     Dates: start: 20070217, end: 20070314

REACTIONS (6)
  - ANXIETY [None]
  - CONDITION AGGRAVATED [None]
  - DRY EYE [None]
  - FATIGUE [None]
  - HEADACHE [None]
  - INSOMNIA [None]
